FAERS Safety Report 6248566-3 (Version None)
Quarter: 2009Q2

REPORT INFORMATION
  Report Type: 
  Country: None (occurrence: None)
  Receive Date: 20090624
  Receipt Date: 20090624
  Transmission Date: 20091009
  Serious: Yes (Life-Threatening, Hospitalization, Other)
  Sender: FDA-Public Use
  Company Number: None

PATIENT
  Age: 65 Year
  Sex: Female
  Weight: 79.1 kg

DRUGS (5)
  1. PROPOFOL [Suspect]
  2. LEVAQUIN [Concomitant]
  3. CLARITIN-D [Concomitant]
  4. FLONASE [Concomitant]
  5. STEROIDS [Concomitant]

REACTIONS (12)
  - ARTHROPATHY [None]
  - COUGH [None]
  - CYSTITIS [None]
  - ENDOTRACHEAL INTUBATION [None]
  - FATIGUE [None]
  - GAIT DISTURBANCE [None]
  - INJECTION SITE IRRITATION [None]
  - MUSCLE SPASMS [None]
  - PAIN [None]
  - RASH [None]
  - SKIN ODOUR ABNORMAL [None]
  - SUICIDAL IDEATION [None]
